FAERS Safety Report 23351656 (Version 1)
Quarter: 2023Q4

REPORT INFORMATION
  Report Type: Spontaneous
  Country: US (occurrence: US)
  Receive Date: 20231229
  Receipt Date: 20231229
  Transmission Date: 20240109
  Serious: No
  Sender: FDA-Public Use
  Company Number: US-SA-SAC20231222000577

PATIENT
  Sex: Male

DRUGS (3)
  1. DUPIXENT [Suspect]
     Active Substance: DUPILUMAB
     Indication: Dermatitis atopic
     Dosage: UNK
  2. EUCRISA [Concomitant]
     Active Substance: CRISABOROLE
     Dosage: 100 MG, QD
  3. CIBINQO [Concomitant]
     Active Substance: ABROCITINIB
     Dosage: 100 MG, QD

REACTIONS (1)
  - Therapeutic response decreased [Unknown]
